FAERS Safety Report 4938555-0 (Version None)
Quarter: 2006Q1

REPORT INFORMATION
  Report Type: 
  Country: None (occurrence: None)
  Receive Date: 20060306
  Receipt Date: 20060220
  Transmission Date: 20060701
  Serious: Yes (Other)
  Sender: FDA-Public Use
  Company Number: US200602004118

PATIENT
  Age: 63 Year
  Sex: Female

DRUGS (4)
  1. HUMALOG [Suspect]
     Indication: DIABETES MELLITUS
     Dosage: SUBCUTANEOUS
     Route: 058
     Dates: start: 20050801
  2. HUMULIN N [Suspect]
     Dosage: SUBCUTANEOUS
     Route: 058
  3. HUMALOG PEN (HUMALOG PEN) PEN, DISPOSABLE [Concomitant]
  4. HUMULIN N PEN (HUMULIN N PEN) [Concomitant]

REACTIONS (5)
  - ABDOMINAL RIGIDITY [None]
  - DYSSTASIA [None]
  - INJECTION SITE ERYTHEMA [None]
  - MOBILITY DECREASED [None]
  - POST PROCEDURAL COMPLICATION [None]
